FAERS Safety Report 6503987-6 (Version None)
Quarter: 2009Q4

REPORT INFORMATION
  Report Type: 
  Country: None (occurrence: None)
  Receive Date: 20091215
  Receipt Date: 20091207
  Transmission Date: 20100525
  Serious: Yes (Hospitalization)
  Sender: FDA-Public Use
  Company Number: LTI2009A00351

PATIENT
  Age: 38 Year
  Sex: Female

DRUGS (11)
  1. LANSOPRAZOLE [Suspect]
     Dosage: UNK. (30 MG) ORAL
     Route: 048
  2. PREVISCAN (FLUINDIONE) [Suspect]
     Dosage: UNK. (D)
  3. BISOPROLOL FUMARATE [Suspect]
     Dosage: (2.5 MG) ORAL
     Route: 048
  4. TRANDOLAPRIL [Suspect]
     Dosage: (0.5 MG) ORAL
     Route: 048
  5. LEXOMIL (BROMAZEPAM) [Suspect]
     Dosage: ORAL
     Route: 048
  6. ATORVASTATIN CALCIUM [Suspect]
     Dosage: (20 MG) ORAL
     Route: 048
  7. ASPIRIN [Suspect]
     Dosage: (160 MG) (160 MG) ORAL ORAL
     Route: 048
  8. AZATHIOPRINE SODIUM [Suspect]
     Dosage: (50 MG) (160 MG) ORAL ORAL
     Route: 048
  9. FLUCONAZOLE [Suspect]
     Dosage: (50 MG) (160 MG) ORAL ORAL
     Route: 048
  10. VALACYCLOVIR HCL [Suspect]
     Dosage: (160 MG) ORAL ORAL
     Route: 048
  11. ACETAMINOPHEN [Suspect]
     Dosage: (160 MG) ORAL ORAL
     Route: 048

REACTIONS (8)
  - ANAEMIA [None]
  - BLOOD ALCOHOL INCREASED [None]
  - ELECTROCARDIOGRAM Q WAVES [None]
  - INTENTIONAL OVERDOSE [None]
  - INTERNATIONAL NORMALISED RATIO INCREASED [None]
  - LOSS OF CONSCIOUSNESS [None]
  - POISONING DELIBERATE [None]
  - VOMITING [None]
